FAERS Safety Report 24429911 (Version 1)
Quarter: 2024Q4

REPORT INFORMATION
  Report Type: Spontaneous
  Country: US (occurrence: US)
  Receive Date: 20241012
  Receipt Date: 20241012
  Transmission Date: 20250114
  Serious: Yes (Hospitalization, Other)
  Sender: BOEHRINGER INGELHEIM
  Company Number: US-BoehringerIngelheim-2024-BI-056586

PATIENT
  Age: 72 Year
  Sex: Female

DRUGS (2)
  1. SPESOLIMAB [Suspect]
     Active Substance: SPESOLIMAB
     Indication: Generalised pustular psoriasis
     Route: 058
     Dates: start: 20221123
  2. SPESOLIMAB [Suspect]
     Active Substance: SPESOLIMAB
     Route: 058
     Dates: start: 20221205

REACTIONS (2)
  - Deep vein thrombosis [Unknown]
  - Pulmonary embolism [Unknown]
